FAERS Safety Report 23244985 (Version 1)
Quarter: 2023Q4

REPORT INFORMATION
  Report Type: Spontaneous
  Country: CN (occurrence: CN)
  Receive Date: 20231130
  Receipt Date: 20231130
  Transmission Date: 20240110
  Serious: Yes (Death, Life-Threatening)
  Sender: FDA-Public Use
  Company Number: CN-OPELLA-2023OHG017151

PATIENT
  Age: 3 Month
  Sex: Male

DRUGS (6)
  1. UBIDECARENONE [Suspect]
     Active Substance: UBIDECARENONE
     Indication: Mitochondrial cytopathy
     Route: 065
  2. LEVOCARNITINE [Suspect]
     Active Substance: LEVOCARNITINE
     Indication: Mitochondrial cytopathy
     Route: 065
  3. VITAMIN B1 [Suspect]
     Active Substance: THIAMINE HYDROCHLORIDE
     Indication: Mitochondrial cytopathy
     Route: 065
  4. VITAMIN B2 [Suspect]
     Active Substance: RIBOFLAVIN
     Indication: Mitochondrial cytopathy
     Route: 065
  5. VITAMIN E [Suspect]
     Active Substance: .ALPHA.-TOCOPHEROL
     Indication: Mitochondrial cytopathy
     Route: 065
  6. LEVETIRACETAM [Suspect]
     Active Substance: LEVETIRACETAM
     Indication: Mitochondrial cytopathy
     Route: 065

REACTIONS (1)
  - Drug withdrawal syndrome [Fatal]
